FAERS Safety Report 16564705 (Version 1)
Quarter: 2019Q3

REPORT INFORMATION
  Report Type: Spontaneous
  Country: US (occurrence: US)
  Receive Date: 20190711
  Receipt Date: 20190711
  Transmission Date: 20191004
  Serious: Yes (Life-Threatening)
  Sender: FDA-Public Use
  Company Number: None

PATIENT
  Age: 56 Year
  Sex: Female
  Weight: 103.5 kg

DRUGS (2)
  1. GAMUNEX-C [Suspect]
     Active Substance: HUMAN IMMUNOGLOBULIN G
     Indication: IMMUNODEFICIENCY
     Dosage: ?          OTHER FREQUENCY:EVERY 4 WEEKS;?
     Route: 042
  2. ALBUTEROL NEBULIZER [Concomitant]
     Active Substance: ALBUTEROL
     Dates: start: 20190710, end: 20190710

REACTIONS (4)
  - Urticaria [None]
  - Throat tightness [None]
  - Paraesthesia oral [None]
  - Formication [None]

NARRATIVE: CASE EVENT DATE: 20190710
